FAERS Safety Report 4942788-7 (Version None)
Quarter: 2006Q1

REPORT INFORMATION
  Report Type: 
  Country: None (occurrence: None)
  Receive Date: 20060309
  Receipt Date: 20060221
  Transmission Date: 20060701
  Serious: Yes (Hospitalization)
  Sender: FDA-Public Use
  Company Number: DE-2005-026823

PATIENT
  Age: 42 Year
  Sex: Male

DRUGS (1)
  1. BETAFERON (INTERFERON BETA-1B) INJECTION, 250UG [Suspect]
     Indication: HERPES ZOSTER
     Dosage: SUBCUTANEOUS
     Route: 058
     Dates: start: 20050101

REACTIONS (4)
  - DEPRESSION [None]
  - GENERAL PHYSICAL CONDITION ABNORMAL [None]
  - GLAUCOMA [None]
  - SUICIDAL IDEATION [None]
